FAERS Safety Report 7806800-X (Version None)
Quarter: 2011Q4

REPORT INFORMATION
  Report Type: 
  Country: None (occurrence: None)
  Receive Date: 20111011
  Receipt Date: 20111007
  Transmission Date: 20120403
  Serious: Yes (Other)
  Sender: FDA-Public Use
  Company Number: CN-PFIZER INC-2011240571

PATIENT

DRUGS (2)
  1. SOLU-MEDROL [Suspect]
     Dosage: 80 MG, 2X/DAY
     Route: 048
  2. INSULIN [Concomitant]
     Indication: DIABETES MELLITUS
     Dosage: UNK
     Route: 048

REACTIONS (2)
  - PLATELET COUNT DECREASED [None]
  - BLOOD GLUCOSE ABNORMAL [None]
